FAERS Safety Report 18790792 (Version 1)
Quarter: 2021Q1

REPORT INFORMATION
  Report Type: Report from Study
  Country: CN (occurrence: CN)
  Receive Date: 20210126
  Receipt Date: 20210126
  Transmission Date: 20210419
  Serious: Yes (Other)
  Sender: FDA-Public Use
  Company Number: CN-VIIV HEALTHCARE LIMITED-CN2021GSK017653

PATIENT

DRUGS (2)
  1. ALPROSTADIL. [Suspect]
     Active Substance: ALPROSTADIL
     Indication: CHRONIC HEPATITIS B
     Dosage: UNK
  2. LAMIVUDINE. [Suspect]
     Active Substance: LAMIVUDINE
     Indication: CHRONIC HEPATITIS B
     Dosage: UNK

REACTIONS (2)
  - Pathogen resistance [Unknown]
  - Viral mutation identified [Unknown]
